FAERS Safety Report 16063342 (Version 1)
Quarter: 2019Q1

REPORT INFORMATION
  Report Type: Spontaneous
  Country: JP (occurrence: JP)
  Receive Date: 20190312
  Receipt Date: 20190312
  Transmission Date: 20190418
  Serious: Yes (Hospitalization, Other)
  Sender: FDA-Public Use
  Company Number: JP-PFIZER INC-2019099784

PATIENT
  Age: 88 Year
  Sex: Female
  Weight: 68 kg

DRUGS (17)
  1. TELTHIA COMBINATION BP DSEP [Concomitant]
  2. EDIROL [Concomitant]
     Active Substance: ELDECALCITOL
     Dosage: 0.75 UG, UNK
  3. CELECOX [Concomitant]
     Active Substance: CELECOXIB
     Dosage: 100 MG, UNK
  4. CALONAL [Concomitant]
     Active Substance: ACETAMINOPHEN
     Dosage: 300 UNK, UNK
  5. PAROXETINE. [Concomitant]
     Active Substance: PAROXETINE
     Dosage: 10 MG, UNK
  6. TEPRENONE [Concomitant]
     Active Substance: TEPRENONE
  7. BAYASPIRIN [Concomitant]
     Active Substance: ASPIRIN
     Dosage: 100 MG, UNK
  8. DISOPYRAMIDE CR 150MG PFIZER [Suspect]
     Active Substance: DISOPYRAMIDE
     Indication: TACHYARRHYTHMIA
     Dosage: 300 MG (150 MG X2), DAILY
     Route: 048
     Dates: end: 20190214
  9. L-ASPARTIC ACID CA [Concomitant]
     Dosage: 200 MG, UNK
  10. MEMARY [Concomitant]
     Active Substance: MEMANTINE HYDROCHLORIDE
     Dosage: 10 MG, UNK
  11. AMLODIPINE [Concomitant]
     Active Substance: AMLODIPINE BESYLATE
     Dosage: 5 MG, UNK
  12. VOLTARENGEL [Concomitant]
  13. LATANOPROST. [Concomitant]
     Active Substance: LATANOPROST
  14. AMOBANTES [Concomitant]
     Dosage: 7.5 UNK, UNK
  15. ALOSENN [ACHILLEA MILLEFOLIUM;RUBIA TINCTORUM ROOT TINCTURE;SENNA ALEX [Concomitant]
  16. ASPARA POTASSIUM [Concomitant]
     Active Substance: POTASSIUM ASPARTATE
  17. AZOPT [Concomitant]
     Active Substance: BRINZOLAMIDE

REACTIONS (5)
  - Aspartate aminotransferase increased [Recovering/Resolving]
  - Drug level increased [Recovering/Resolving]
  - Renal impairment [Not Recovered/Not Resolved]
  - Long QT syndrome [Recovering/Resolving]
  - Ventricular fibrillation [Recovering/Resolving]

NARRATIVE: CASE EVENT DATE: 20190214
